FAERS Safety Report 13570958 (Version 2)
Quarter: 2017Q3

REPORT INFORMATION
  Report Type: Spontaneous
  Country: US (occurrence: US)
  Receive Date: 20170523
  Receipt Date: 20170728
  Transmission Date: 20171127
  Serious: Yes (Other)
  Sender: FDA-Public Use
  Company Number: US-NOVEN PHARMACEUTICALS, INC.-US2017000675

PATIENT

DRUGS (2)
  1. DAYTRANA [Suspect]
     Active Substance: METHYLPHENIDATE
     Dosage: 20 MG, UNKNOWN
     Route: 062
     Dates: start: 201701, end: 201701
  2. DAYTRANA [Suspect]
     Active Substance: METHYLPHENIDATE
     Indication: ATTENTION DEFICIT/HYPERACTIVITY DISORDER
     Dosage: UNK, UNKNOWN
     Route: 062
     Dates: end: 2016

REACTIONS (7)
  - Educational problem [Not Recovered/Not Resolved]
  - Depression [Not Recovered/Not Resolved]
  - Drug dose omission [Not Recovered/Not Resolved]
  - Mood swings [Not Recovered/Not Resolved]
  - Disturbance in attention [Not Recovered/Not Resolved]
  - Social avoidant behaviour [Not Recovered/Not Resolved]
  - Suicidal ideation [Not Recovered/Not Resolved]

NARRATIVE: CASE EVENT DATE: 201701
